FAERS Safety Report 16742618 (Version 2)
Quarter: 2019Q3

REPORT INFORMATION
  Report Type: Spontaneous
  Country: JP (occurrence: JP)
  Receive Date: 20190826
  Receipt Date: 20190910
  Transmission Date: 20191005
  Serious: Yes (Hospitalization, Other)
  Sender: FDA-Public Use
  Company Number: JP-009507513-1908JPN002109J

PATIENT
  Age: 73 Year
  Sex: Male
  Weight: 62 kg

DRUGS (12)
  1. KEYTRUDA [Suspect]
     Active Substance: PEMBROLIZUMAB
     Indication: NON-SMALL CELL LUNG CANCER
     Dosage: 200 MILLIGRAM, Q3W
     Route: 041
     Dates: start: 20180413, end: 20190814
  2. RANMARK [Concomitant]
     Active Substance: DENOSUMAB
     Indication: METASTASES TO BONE
     Dosage: UNK
     Route: 058
  3. BAYASPIRIN [Concomitant]
     Active Substance: ASPIRIN
     Indication: ANGINA PECTORIS
     Dosage: 100 MILLIGRAM, QD
     Route: 048
     Dates: start: 201706, end: 20190823
  4. CLOPIDOGREL [Concomitant]
     Active Substance: CLOPIDOGREL BISULFATE
     Indication: ANGINA PECTORIS
     Dosage: 75 MILLIGRAM, QD
     Route: 048
     Dates: start: 201706, end: 20190823
  5. SYMPROIC [Concomitant]
     Active Substance: NALDEMEDINE
     Indication: CONSTIPATION
     Dosage: 0.2 MILLIGRAM, QD
     Route: 048
     Dates: start: 201706, end: 20190823
  6. OXYCODONE [Concomitant]
     Active Substance: OXYCODONE
     Indication: PAIN
     Dosage: 30 MILLIGRAM, BID
     Route: 048
     Dates: start: 201706, end: 20190823
  7. URIEF [Concomitant]
     Active Substance: SILODOSIN
     Indication: BLOOD URIC ACID
     Dosage: 4 MILLIGRAM, BID
     Route: 048
     Dates: start: 201706, end: 20190823
  8. LYRICA [Concomitant]
     Active Substance: PREGABALIN
     Indication: PAIN
     Dosage: 75 GRAM, BID
     Route: 048
     Dates: start: 201706, end: 20190823
  9. LIMAPROST ALFADEX [Concomitant]
     Active Substance: LIMAPROST
     Indication: LUMBAR SPINAL STENOSIS
     Dosage: 5 MICROGRAM, TID
     Route: 048
     Dates: start: 201706, end: 20190823
  10. NEXIUM [Concomitant]
     Active Substance: ESOMEPRAZOLE MAGNESIUM
     Indication: GASTRIC ULCER
     Dosage: 20 MILLIGRAM, QD
     Route: 048
     Dates: start: 201706, end: 20190823
  11. ENALAPRIL MALEATE. [Concomitant]
     Active Substance: ENALAPRIL MALEATE
     Indication: HYPERTENSION
     Dosage: 25 MILLIGRAM, QD
     Route: 048
     Dates: start: 201706, end: 20190823
  12. ATORVASTATIN [Concomitant]
     Active Substance: ATORVASTATIN
     Indication: HYPERLIPIDAEMIA
     Dosage: 15 MILLIGRAM, QD
     Route: 048
     Dates: start: 201706, end: 20190823

REACTIONS (1)
  - Interstitial lung disease [Recovering/Resolving]

NARRATIVE: CASE EVENT DATE: 20190817
